FAERS Safety Report 19156032 (Version 6)
Quarter: 2021Q2

REPORT INFORMATION
  Report Type: Report from Study
  Country: US (occurrence: US)
  Receive Date: 20210419
  Receipt Date: 20210616
  Transmission Date: 20210717
  Serious: Yes (Hospitalization)
  Sender: FDA-Public Use
  Company Number: US-PFIZER INC-2021264670

PATIENT
  Age: 43 Year
  Sex: Female
  Weight: 99.8 kg

DRUGS (3)
  1. TOZINAMERAN. [Suspect]
     Active Substance: TOZINAMERAN
     Indication: COVID-19 IMMUNISATION
     Dosage: 4TH DOSE, SINGLE
     Route: 030
     Dates: start: 20210201, end: 20210201
  2. GABAPENTIN. [Suspect]
     Active Substance: GABAPENTIN
     Indication: ANXIETY
     Dosage: 100 MG, THREE TIMES A DAY
     Route: 048
     Dates: start: 20210205, end: 20210309
  3. KLONOPIN [Suspect]
     Active Substance: CLONAZEPAM
     Indication: ANXIETY
     Dosage: 1 MG, 3X/DAY
     Route: 048
     Dates: start: 2006

REACTIONS (2)
  - Ankle fracture [Recovered/Resolved with Sequelae]
  - Encephalopathy [Recovered/Resolved]

NARRATIVE: CASE EVENT DATE: 20210309
